FAERS Safety Report 4316080-8 (Version None)
Quarter: 2004Q1

REPORT INFORMATION
  Report Type: 
  Country: None (occurrence: None)
  Receive Date: 20040309
  Receipt Date: 20040219
  Transmission Date: 20041129
  Serious: Yes (Hospitalization)
  Sender: FDA-Public Use
  Company Number: B0320412A

PATIENT
  Age: 24 Month
  Sex: Male

DRUGS (6)
  1. ALKERAN [Suspect]
  2. CISPLATIN [Suspect]
  3. IFOSFAMIDE [Suspect]
  4. AMIKACIN SULFATE [Suspect]
  5. CARBOPLATIN [Suspect]
  6. ETOPOSIDE [Suspect]

REACTIONS (10)
  - ABDOMINAL DISTENSION [None]
  - BONE MARROW DEPRESSION [None]
  - BONE MARROW TRANSPLANT [None]
  - FANCONI SYNDROME ACQUIRED [None]
  - GASTROINTESTINAL MUCOSAL DISORDER [None]
  - HEPATIC NEOPLASM MALIGNANT [None]
  - ILEUS [None]
  - LIVER DISORDER [None]
  - PARALYSIS [None]
  - RENAL ATROPHY [None]
